FAERS Safety Report 23577789 (Version 5)
Quarter: 2024Q2

REPORT INFORMATION
  Report Type: Spontaneous
  Country: EG (occurrence: EG)
  Receive Date: 20240228
  Receipt Date: 20240420
  Transmission Date: 20240715
  Serious: Yes (Death, Other)
  Sender: FDA-Public Use
  Company Number: EG-ABBVIE-5656643

PATIENT
  Age: 3 Day

DRUGS (1)
  1. SURVANTA [Suspect]
     Active Substance: BERACTANT
     Indication: Neonatal respiratory distress syndrome
     Dosage: 25 MG/ML, 4 ML SINGLE DOSE?FORM STRENGTH: 4 MILLILITRE
     Route: 039
     Dates: start: 20231124

REACTIONS (2)
  - Pulmonary haemorrhage [Fatal]
  - Unevaluable event [Fatal]

NARRATIVE: CASE EVENT DATE: 20231101
